FAERS Safety Report 5242914-9 (Version None)
Quarter: 2007Q1

REPORT INFORMATION
  Report Type: 
  Country: None (occurrence: None)
  Receive Date: 20070214
  Receipt Date: 20070129
  Transmission Date: 20070707
  Serious: Yes (Hospitalization)
  Sender: FDA-Public Use
  Company Number: 2006PV024894

PATIENT
  Age: 88 Year
  Sex: Female
  Weight: 95.2554 kg

DRUGS (4)
  1. BYETTA [Suspect]
     Indication: DIABETES MELLITUS NON-INSULIN-DEPENDENT
     Dosage: 5 MCG;BID;SC
     Route: 058
     Dates: start: 20060712, end: 20060101
  2. BYETTA [Suspect]
     Indication: DIABETES MELLITUS NON-INSULIN-DEPENDENT
     Dosage: 5 MCG;BID;SC
     Route: 058
     Dates: start: 20060828, end: 20060926
  3. BYETTA [Suspect]
     Indication: DIABETES MELLITUS NON-INSULIN-DEPENDENT
     Dosage: 5 MCG;BID;SC
     Route: 058
     Dates: start: 20060926
  4. AVANDARYL [Concomitant]

REACTIONS (5)
  - FALL [None]
  - NAUSEA [None]
  - RADIUS FRACTURE [None]
  - SUPRAVENTRICULAR TACHYCARDIA [None]
  - WEIGHT DECREASED [None]
